FAERS Safety Report 4547458-5 (Version None)
Quarter: 2005Q1

REPORT INFORMATION
  Report Type: 
  Country: None (occurrence: None)
  Receive Date: 20050107
  Receipt Date: 20041208
  Transmission Date: 20050727
  Serious: Yes (Hospitalization)
  Sender: FDA-Public Use
  Company Number: 2004-0323

PATIENT
  Age: 3 Week
  Sex: Male
  Weight: 3.5 kg

DRUGS (4)
  1. RANIPLEX [Suspect]
     Indication: GASTROOESOPHAGEAL REFLUX DISEASE
     Dosage: 12MCK PER DAY
     Route: 048
     Dates: start: 20041202, end: 20041208
  2. PRIMPERAN INJ [Concomitant]
     Indication: GASTROOESOPHAGEAL REFLUX DISEASE
     Dosage: 18DROP PER DAY
     Route: 048
     Dates: start: 20041202
  3. FERROSTRANE [Concomitant]
     Indication: HAEMOGLOBIN DECREASED
     Dosage: 1SP PER DAY
     Route: 048
     Dates: start: 20041202
  4. UVESTEROL [Concomitant]
     Route: 048

REACTIONS (5)
  - APLASTIC ANAEMIA [None]
  - HAEMOGLOBIN DECREASED [None]
  - HAEMOLYTIC ANAEMIA [None]
  - HYPERBILIRUBINAEMIA [None]
  - JAUNDICE NEONATAL [None]
